FAERS Safety Report 15370401 (Version 10)
Quarter: 2019Q4

REPORT INFORMATION
  Report Type: Spontaneous
  Country: US (occurrence: US)
  Receive Date: 20180911
  Receipt Date: 20191218
  Transmission Date: 20200122
  Serious: Yes (Other)
  Sender: FDA-Public Use
  Company Number: US-PFIZER INC-2018365128

PATIENT
  Age: 59 Year
  Sex: Female

DRUGS (2)
  1. SKELAXIN [Suspect]
     Active Substance: METAXALONE
     Dosage: UNK
  2. RELPAX [Suspect]
     Active Substance: ELETRIPTAN HYDROBROMIDE
     Indication: MIGRAINE
     Dosage: 40 MG, AS NEEDED [ONE TABLET AT THE ONSET OF MIGRAINE OR MAY BE REPEATED EVERY TWO HOURS]

REACTIONS (7)
  - Tooth disorder [Unknown]
  - Hypersomnia [Unknown]
  - Condition aggravated [Unknown]
  - Pain [Unknown]
  - Loss of consciousness [Unknown]
  - Intentional product misuse [Unknown]
  - Malaise [Unknown]
